FAERS Safety Report 7772008-X (Version None)
Quarter: 2011Q3

REPORT INFORMATION
  Report Type: 
  Country: None (occurrence: None)
  Receive Date: 20110922
  Receipt Date: 20101019
  Transmission Date: 20111222
  Serious: No
  Sender: FDA-Public Use
  Company Number: US-ASTRAZENECA-2010SE49517

PATIENT
  Age: 50 Year
  Sex: Female

DRUGS (6)
  1. SEROQUEL [Suspect]
     Route: 048
     Dates: end: 20090501
  2. SEROQUEL [Suspect]
     Route: 048
     Dates: start: 20090501, end: 20100801
  3. TOPAMAX [Concomitant]
  4. SEROQUEL [Suspect]
     Route: 048
     Dates: start: 20100801
  5. NUVAGEL [Concomitant]
  6. SYMBALTA [Concomitant]

REACTIONS (3)
  - ALOPECIA [None]
  - FATIGUE [None]
  - HYPOTHYROIDISM [None]
